FAERS Safety Report 16305723 (Version 1)
Quarter: 2019Q2

REPORT INFORMATION
  Report Type: Spontaneous
  Country: US (occurrence: US)
  Receive Date: 20190512
  Receipt Date: 20190512
  Transmission Date: 20190711
  Serious: Yes (Disabling)
  Sender: FDA-Public Use
  Company Number: None

PATIENT
  Age: 16 Year
  Sex: Male
  Weight: 52.65 kg

DRUGS (12)
  1. SERTRALINE HCL [Suspect]
     Active Substance: SERTRALINE HYDROCHLORIDE
     Indication: PANIC ATTACK
     Dosage: ?          QUANTITY:1 TABLET(S);?
     Route: 048
     Dates: start: 20150715
  2. SERTRALINE [Concomitant]
     Active Substance: SERTRALINE HYDROCHLORIDE
  3. EPIDIOLEX [Concomitant]
     Active Substance: CANNABIDIOL
  4. EPIDIOLEX [Suspect]
     Active Substance: CANNABIDIOL
     Indication: EPILEPSY
     Dosage: ?          QUANTITY:1.1 ML;?
     Route: 048
     Dates: start: 20190125
  5. LEVOTHYROXINE. [Concomitant]
     Active Substance: LEVOTHYROXINE
  6. EXLAX CHOCOLATE SQUARE [Concomitant]
  7. CLOBAZAM. [Concomitant]
     Active Substance: CLOBAZAM
  8. CALCIUM GUMMIES [Concomitant]
  9. FLONASE(GENERIC) [Concomitant]
  10. VITAMIN D [Concomitant]
     Active Substance: VITAMIN D NOS
  11. SERTRALINE HCL [Suspect]
     Active Substance: SERTRALINE HYDROCHLORIDE
     Indication: ANXIETY
     Dosage: ?          QUANTITY:1 TABLET(S);?
     Route: 048
     Dates: start: 20150715
  12. OXTELLAR XR [Concomitant]
     Active Substance: OXCARBAZEPINE

REACTIONS (5)
  - Inappropriate affect [None]
  - Euphoric mood [None]
  - Energy increased [None]
  - Distractibility [None]
  - Mania [None]

NARRATIVE: CASE EVENT DATE: 20190508
